FAERS Safety Report 5520485-7 (Version None)
Quarter: 2007Q4

REPORT INFORMATION
  Report Type: 
  Country: None (occurrence: None)
  Receive Date: 20071119
  Receipt Date: 20071108
  Transmission Date: 20080405
  Serious: Yes (Life-Threatening, Hospitalization)
  Sender: FDA-Public Use
  Company Number: DE-ELI_LILLY_AND_COMPANY-DE200710006876

PATIENT
  Sex: Female
  Weight: 85 kg

DRUGS (13)
  1. FORTEO [Suspect]
     Indication: OSTEOPOROSIS
     Dosage: 20 UG, DAILY (1/D)
     Route: 058
     Dates: start: 20040921, end: 20050922
  2. URBASON                                 /GFR/ [Concomitant]
     Indication: COLITIS ULCERATIVE
     Dosage: 8 MG, UNKNOWN
     Route: 048
     Dates: start: 19890101
  3. SALOFALK [Concomitant]
     Indication: COLITIS ULCERATIVE
     Dosage: 3 PER 2
     Route: 048
     Dates: start: 19890101
  4. AZAFALK [Concomitant]
     Indication: COLITIS ULCERATIVE
     Dosage: 2 PER 1
     Route: 065
     Dates: start: 19890101
  5. PLASTUFER [Concomitant]
     Indication: IRON DEFICIENCY
     Dosage: 1
     Route: 048
  6. IMODIUM [Concomitant]
     Indication: COLITIS ULCERATIVE
     Dosage: 1
     Route: 048
  7. METOPROLOL SUCCINATE [Concomitant]
     Indication: HYPERTENSION
     Dosage: 1
     Route: 048
  8. L-THYROXINE [Concomitant]
     Indication: THYROIDECTOMY
     Dosage: 1
     Route: 048
     Dates: start: 19920101
  9. OSSOFORTIN FORTE [Concomitant]
     Indication: OSTEOPOROSIS
     Dosage: 2 PER 1
     Route: 048
     Dates: start: 19980101
  10. DIOVAN [Concomitant]
     Indication: HYPERTENSION
     Dosage: 1
     Route: 048
     Dates: start: 20050801
  11. NEXIUM [Concomitant]
     Indication: GASTRIC DISORDER
     Dosage: 1
     Route: 048
     Dates: start: 20061001
  12. CITALOPRAM HYDROBROMIDE [Concomitant]
     Indication: DEPRESSION
     Dosage: 20 MG, UNKNOWN
     Route: 048
     Dates: start: 20061001
  13. STILNOX [Concomitant]
     Indication: SLEEP DISORDER
     Dosage: UNK, UNKNOWN
     Route: 048
     Dates: start: 20061001

REACTIONS (4)
  - COLITIS ULCERATIVE [None]
  - INTESTINAL PERFORATION [None]
  - MICTURITION URGENCY [None]
  - WEIGHT INCREASED [None]
